FAERS Safety Report 8341470-6 (Version None)
Quarter: 2012Q2

REPORT INFORMATION
  Report Type: 
  Country: None (occurrence: None)
  Receive Date: 20120507
  Receipt Date: 20091228
  Transmission Date: 20120825
  Serious: No
  Sender: FDA-Public Use
  Company Number: US-TEVA-2009029883

PATIENT
  Sex: Male

DRUGS (1)
  1. TREANDA [Suspect]
     Indication: B-CELL LYMPHOMA
     Route: 042
     Dates: start: 20090820, end: 20091105

REACTIONS (9)
  - FATIGUE [None]
  - SKIN NECROSIS [None]
  - WEIGHT GAIN POOR [None]
  - LIMB DISCOMFORT [None]
  - WEIGHT DECREASED [None]
  - RADICULAR PAIN [None]
  - ASTHENIA [None]
  - DECREASED APPETITE [None]
  - RASH MACULAR [None]
